FAERS Safety Report 6886861-5 (Version None)
Quarter: 2010Q3

REPORT INFORMATION
  Report Type: 
  Country: None (occurrence: None)
  Receive Date: 20100729
  Receipt Date: 20100729
  Transmission Date: 20110219
  Serious: Yes (Other)
  Sender: FDA-Public Use
  Company Number: None

PATIENT
  Sex: Female
  Weight: 77.1 kg

DRUGS (2)
  1. RITUXAN [Suspect]
     Indication: DIFFUSE LARGE B-CELL LYMPHOMA
     Dosage: 700 D1+15 Q 4WK X4 CYCLES IV
     Route: 042
     Dates: start: 20100727
  2. RITUXAN [Suspect]

REACTIONS (5)
  - BLOOD PRESSURE SYSTOLIC INCREASED [None]
  - FEELING COLD [None]
  - HEADACHE [None]
  - INFUSION RELATED REACTION [None]
  - TREMOR [None]
